FAERS Safety Report 4996927-2 (Version None)
Quarter: 2006Q2

REPORT INFORMATION
  Report Type: 
  Country: None (occurrence: None)
  Receive Date: 20060509
  Receipt Date: 20060421
  Transmission Date: 20061013
  Serious: Yes (Other)
  Sender: FDA-Public Use
  Company Number: ES-GLAXOSMITHKLINE-B0421845A

PATIENT
  Age: 64 Year
  Sex: Female

DRUGS (8)
  1. AVANDAMET [Suspect]
     Indication: DIABETES MELLITUS NON-INSULIN-DEPENDENT
     Route: 048
     Dates: start: 20051130, end: 20060314
  2. LOSARTAN POTASSIUM [Concomitant]
  3. ACETYLSALICYLIC ACID SRT [Concomitant]
     Dosage: 100MG PER DAY
  4. DOXAZOSIN [Concomitant]
     Dosage: 4MG PER DAY
  5. AMLODIPINE [Concomitant]
     Dosage: 5MG PER DAY
  6. ATORVASTATIN [Concomitant]
     Dosage: 10MG PER DAY
  7. METFORMIN [Concomitant]
     Dosage: 850MG TWICE PER DAY
  8. GLICLAZIDE [Concomitant]
     Dosage: 40MG TWICE PER DAY

REACTIONS (1)
  - PANCYTOPENIA [None]
